FAERS Safety Report 6227352-4 (Version None)
Quarter: 2009Q2

REPORT INFORMATION
  Report Type: 
  Country: None (occurrence: None)
  Receive Date: 20090612
  Receipt Date: 20090602
  Transmission Date: 20091009
  Serious: Yes (Hospitalization)
  Sender: FDA-Public Use
  Company Number: FR-AMGEN-UK275811

PATIENT
  Sex: Male

DRUGS (7)
  1. PANITUMUMAB [Suspect]
     Indication: SQUAMOUS CELL CARCINOMA
     Route: 042
     Dates: start: 20080414
  2. FLUOROURACIL [Suspect]
     Route: 042
     Dates: start: 20080414, end: 20080418
  3. CISPLATIN [Concomitant]
     Route: 042
     Dates: start: 20080414, end: 20080414
  4. PAROXETINE HCL [Concomitant]
  5. OXYCONTIN [Concomitant]
  6. IMOVANE [Concomitant]
  7. LYRICA [Concomitant]

REACTIONS (1)
  - COLITIS ULCERATIVE [None]
